FAERS Safety Report 21926847 (Version 1)
Quarter: 2023Q1

REPORT INFORMATION
  Report Type: Spontaneous
  Country: US (occurrence: None)
  Receive Date: 20230127
  Receipt Date: 20230127
  Transmission Date: 20230418
  Serious: Yes (unspecified)
  Sender: FDA-Public Use
  Company Number: None

PATIENT
  Age: 22 Year
  Sex: Female
  Weight: 51.75 kg

DRUGS (3)
  1. DEXTROAMPHETAMINE SACCHARATE [Suspect]
     Active Substance: DEXTROAMPHETAMINE SACCHARATE
     Indication: Attention deficit hyperactivity disorder
     Dosage: OTHER QUANTITY : 30 CAPSULE(S);?FREQUENCY : DAILY;?
     Route: 048
     Dates: start: 20230106, end: 20230127
  2. AMPHETAMINE ASPARTATE [Concomitant]
     Active Substance: AMPHETAMINE ASPARTATE
  3. DEXTROAMPHETAMINE [Concomitant]
     Active Substance: DEXTROAMPHETAMINE

REACTIONS (10)
  - Manufacturing issue [None]
  - Product quality issue [None]
  - Depressive symptom [None]
  - Attention deficit hyperactivity disorder [None]
  - Disease recurrence [None]
  - Apathy [None]
  - Lethargy [None]
  - Feeling abnormal [None]
  - Suicidal ideation [None]
  - Educational problem [None]

NARRATIVE: CASE EVENT DATE: 20230109
